FAERS Safety Report 24431019 (Version 1)
Quarter: 2024Q4

REPORT INFORMATION
  Report Type: Spontaneous
  Country: US (occurrence: US)
  Receive Date: 20241014
  Receipt Date: 20241014
  Transmission Date: 20250115
  Serious: No
  Sender: AMGEN
  Company Number: US-AMGEN-USASP2024200891

PATIENT
  Age: 77 Year
  Sex: Male

DRUGS (2)
  1. TAVNEOS [Suspect]
     Active Substance: AVACOPAN
     Indication: Glomerulonephritis rapidly progressive
     Dosage: 10 MILLIGRAM, QD
     Route: 065
     Dates: start: 20240722, end: 20241005
  2. TAVNEOS [Suspect]
     Active Substance: AVACOPAN
     Indication: Off label use

REACTIONS (3)
  - Skin lesion [Recovering/Resolving]
  - Rash [Recovering/Resolving]
  - Off label use [Unknown]

NARRATIVE: CASE EVENT DATE: 20240101
